FAERS Safety Report 10641968 (Version 1)
Quarter: 2014Q4

REPORT INFORMATION
  Report Type: Report from Study
  Country: US (occurrence: US)
  Receive Date: 20141209
  Receipt Date: 20141209
  Transmission Date: 20150529
  Serious: Yes (Death, Other)
  Sender: FDA-Public Use
  Company Number: US-GILEAD-2014-0126172

PATIENT
  Age: 42 Year
  Sex: Female

DRUGS (3)
  1. VITAMINS NOS W/ZINC [Concomitant]
     Indication: CYSTIC FIBROSIS
     Dosage: UNK
     Dates: start: 20141106, end: 20141202
  2. AZTREONAM LYSINE [Suspect]
     Active Substance: AZTREONAM LYSINE
     Indication: CYSTIC FIBROSIS
     Dosage: 75 MG, UNK
     Route: 055
     Dates: start: 20121025, end: 20141202
  3. TOBRAMYCIN. [Concomitant]
     Active Substance: TOBRAMYCIN
     Indication: CYSTIC FIBROSIS
     Dosage: UNK
     Dates: start: 20140218, end: 20141202

REACTIONS (1)
  - Death [Fatal]

NARRATIVE: CASE EVENT DATE: 20141202
